FAERS Safety Report 22776127 (Version 3)
Quarter: 2025Q2

REPORT INFORMATION
  Report Type: Report from Study
  Country: CA (occurrence: CA)
  Receive Date: 20230802
  Receipt Date: 20250602
  Transmission Date: 20250716
  Serious: Yes (Other)
  Sender: TAKEDA
  Company Number: CA-TAKEDA-2023TUS074757

PATIENT
  Sex: Male

DRUGS (17)
  1. VEDOLIZUMAB [Suspect]
     Active Substance: VEDOLIZUMAB
     Indication: Colitis ulcerative
  2. VEDOLIZUMAB [Suspect]
     Active Substance: VEDOLIZUMAB
  3. VEDOLIZUMAB [Suspect]
     Active Substance: VEDOLIZUMAB
  4. PREDNISONE [Concomitant]
     Active Substance: PREDNISONE
  5. PENTASA [Concomitant]
     Active Substance: MESALAMINE
     Dosage: 4 GRAM, BID
  6. PERINDOPRIL [Concomitant]
     Active Substance: PERINDOPRIL
     Dosage: 7 MILLIGRAM, QD
  7. AMLODIPINE [Concomitant]
     Active Substance: AMLODIPINE BESYLATE
     Dosage: 5 MILLIGRAM, QD
  8. ATORVASTATIN [Concomitant]
     Active Substance: ATORVASTATIN
     Dosage: 10 MILLIGRAM, QD
  9. PANTOPRAZOLE MAGNESIUM [Concomitant]
     Active Substance: PANTOPRAZOLE MAGNESIUM
     Dosage: 40 MILLIGRAM, QD
  10. NITROGLYCERIN [Concomitant]
     Active Substance: NITROGLYCERIN
  11. EBASTINE [Concomitant]
     Active Substance: EBASTINE
     Dosage: 10 MILLIGRAM, QD
  12. BUDESONIDE [Concomitant]
     Active Substance: BUDESONIDE
     Dosage: UNK UNK, QD
  13. ASPIRIN [Concomitant]
     Active Substance: ASPIRIN
  14. MESALAMINE [Concomitant]
     Active Substance: MESALAMINE
     Dosage: UNK UNK, QD
  15. FUROSEMIDE [Concomitant]
     Active Substance: FUROSEMIDE
  16. ALBUTEROL [Concomitant]
     Active Substance: ALBUTEROL
  17. SODIUM CHLORIDE [Concomitant]
     Active Substance: SODIUM CHLORIDE

REACTIONS (6)
  - Bronchiectasis [Unknown]
  - Pulmonary oedema [Not Recovered/Not Resolved]
  - Staphylococcal infection [Recovering/Resolving]
  - Respiratory tract infection bacterial [Recovering/Resolving]
  - Nasopharyngitis [Unknown]
  - Bronchitis [Unknown]
